FAERS Safety Report 13925669 (Version 2)
Quarter: 2017Q3

REPORT INFORMATION
  Report Type: Report from Study
  Country: US (occurrence: US)
  Receive Date: 20170831
  Receipt Date: 20170907
  Transmission Date: 20171127
  Serious: No
  Sender: FDA-Public Use
  Company Number: US-AMGEN-USASL2017130940

PATIENT
  Age: 19 Year
  Sex: Male

DRUGS (1)
  1. ENBREL [Suspect]
     Active Substance: ETANERCEPT
     Indication: PSORIATIC ARTHROPATHY
     Dosage: 50 MG, QWK
     Route: 065

REACTIONS (3)
  - Accidental exposure to product [Unknown]
  - Injection site pain [Recovered/Resolved]
  - Injection site discomfort [Recovered/Resolved]
